FAERS Safety Report 17794779 (Version 2)
Quarter: 2020Q2

REPORT INFORMATION
  Report Type: Spontaneous
  Country: US (occurrence: US)
  Receive Date: 20200515
  Receipt Date: 20200521
  Transmission Date: 20200714
  Serious: Yes (Hospitalization, Other)
  Sender: FDA-Public Use
  Company Number: US-ASTRAZENECA-2020SE63155

PATIENT
  Sex: Male
  Weight: 117.9 kg

DRUGS (7)
  1. FARXIGA [Suspect]
     Active Substance: DAPAGLIFLOZIN PROPANEDIOL
     Indication: BLOOD GLUCOSE INCREASED
     Dosage: 1 PILL DAILY
     Route: 048
  2. LISINOPRIL. [Concomitant]
     Active Substance: LISINOPRIL
     Indication: HYPERTENSION
     Dosage: 10.0MG UNKNOWN
     Route: 065
  3. PRILOSEC [Suspect]
     Active Substance: OMEPRAZOLE MAGNESIUM
     Indication: GASTRIC DISORDER
     Route: 048
  4. NOVOLOG [Concomitant]
     Active Substance: INSULIN ASPART
     Route: 065
  5. BETHACOL [Interacting]
     Active Substance: BETHANECHOL
     Indication: IMPAIRED GASTRIC EMPTYING
     Dosage: 5.0MG UNKNOWN
     Route: 065
  6. METFORMIN [Concomitant]
     Active Substance: METFORMIN HYDROCHLORIDE
     Route: 065
  7. BYDUREON [Suspect]
     Active Substance: EXENATIDE
     Indication: DIABETES MELLITUS
     Route: 065
     Dates: start: 2020

REACTIONS (11)
  - Increased appetite [Unknown]
  - Blood glucose decreased [Unknown]
  - Drug interaction [Unknown]
  - Hernia [Unknown]
  - Feeding disorder [Unknown]
  - Fatigue [Unknown]
  - Diabetic gastroparesis [Unknown]
  - Asthenia [Unknown]
  - Malaise [Unknown]
  - Blood glucose increased [Unknown]
  - Somnolence [Unknown]
